FAERS Safety Report 7406382-0 (Version None)
Quarter: 2011Q2

REPORT INFORMATION
  Report Type: 
  Country: None (occurrence: None)
  Receive Date: 20110411
  Receipt Date: 20110329
  Transmission Date: 20111010
  Serious: Yes (Hospitalization, Other)
  Sender: FDA-Public Use
  Company Number: PHHY2010JP60173

PATIENT
  Sex: Female
  Weight: 46 kg

DRUGS (1)
  1. CGS 20267 [Suspect]
     Indication: BREAST CANCER
     Dosage: 2.5 MG, DAILY
     Route: 048
     Dates: start: 20071025

REACTIONS (3)
  - FEMUR FRACTURE [None]
  - OSTEOPOROSIS [None]
  - FALL [None]
